FAERS Safety Report 17453449 (Version 2)
Quarter: 2020Q1

REPORT INFORMATION
  Report Type: Spontaneous
  Country: US (occurrence: US)
  Receive Date: 20200224
  Receipt Date: 20200327
  Transmission Date: 20200409
  Serious: No
  Sender: FDA-Public Use
  Company Number: US-TRIS PHARMA, INC.-20US008824

PATIENT

DRUGS (1)
  1. HYDROCODONE + APAP [Suspect]
     Active Substance: ACETAMINOPHEN\HYDROCODONE BITARTRATE
     Indication: PAIN
     Dosage: UNK
     Route: 065
     Dates: start: 20200212, end: 20200217

REACTIONS (9)
  - Pain [Recovered/Resolved]
  - Manufacturing production issue [Unknown]
  - Vomiting [Recovered/Resolved]
  - Headache [Recovered/Resolved]
  - Product quality issue [Unknown]
  - Sleep disorder due to general medical condition, insomnia type [Recovered/Resolved]
  - Nausea [Recovered/Resolved]
  - Drug ineffective [Recovered/Resolved]
  - Cold sweat [Recovered/Resolved]

NARRATIVE: CASE EVENT DATE: 20200212
